FAERS Safety Report 7386803-2 (Version None)
Quarter: 2011Q1

REPORT INFORMATION
  Report Type: 
  Country: None (occurrence: None)
  Receive Date: 20110323
  Receipt Date: 20110308
  Transmission Date: 20110831
  Serious: Yes (Hospitalization)
  Sender: FDA-Public Use
  Company Number: 026105

PATIENT
  Sex: Female
  Weight: 80 kg

DRUGS (13)
  1. CORDANUM [Concomitant]
  2. MAGNESIUM VERLA [Concomitant]
  3. VOLTAREN [Concomitant]
  4. SIMVASTATIN [Concomitant]
  5. TIMOLOL [Concomitant]
  6. NEUPRO [Suspect]
     Indication: RESTLESS LEGS SYNDROME
     Dosage: 6MG QD TRANSDERMAL
     Route: 062
     Dates: start: 20080603, end: 20110214
  7. MICARDIS [Concomitant]
  8. ALLOPURINOL [Concomitant]
  9. HYDROCHLOROTHIAZIDE [Concomitant]
  10. LEVODOPA [Concomitant]
  11. RESTEX [Concomitant]
  12. ASPIRIN [Concomitant]
  13. BIOTIN [Concomitant]

REACTIONS (6)
  - APPLICATION SITE ERYTHEMA [None]
  - APPLICATION SITE PRURITUS [None]
  - OFF LABEL USE [None]
  - APPLICATION SITE PUSTULES [None]
  - MUSCLE TWITCHING [None]
  - APPLICATION SITE SWELLING [None]
